FAERS Safety Report 13365752 (Version 1)
Quarter: 2017Q1

REPORT INFORMATION
  Report Type: Spontaneous
  Country: US (occurrence: US)
  Receive Date: 20170323
  Receipt Date: 20170323
  Transmission Date: 20170429
  Serious: No
  Sender: FDA-Public Use
  Company Number: US-WARNER CHILCOTT-2016-002179

PATIENT
  Age: 79 Year
  Sex: Female
  Weight: 65 kg

DRUGS (12)
  1. RALOXIFENE. [Concomitant]
     Active Substance: RALOXIFENE
     Indication: OSTEOPOROSIS
     Dosage: UNK, QD
  2. ESTRACE [Suspect]
     Active Substance: ESTRADIOL
     Indication: VULVOVAGINAL DRYNESS
     Dosage: 0.5 GRAMS TWICE A WEEK
     Route: 067
     Dates: start: 20160112
  3. MONTELUKAST [Concomitant]
     Active Substance: MONTELUKAST SODIUM
     Indication: ASTHMA
     Dosage: UNK UNK, QD
  4. MECLIZINE [Concomitant]
     Active Substance: MECLIZINE HYDROCHLORIDE
     Indication: VERTIGO
     Dosage: UNK, PRN
  5. LATANOPROST. [Concomitant]
     Active Substance: LATANOPROST
     Indication: GLAUCOMA
     Dosage: UNK, BEDTIME
     Route: 047
  6. ESTRACE [Suspect]
     Active Substance: ESTRADIOL
     Indication: ATROPHIC VULVOVAGINITIS
     Dosage: 1 G, TWICE A WEEK
     Route: 067
     Dates: start: 2014, end: 2016
  7. ATORVASTATIN [Concomitant]
     Active Substance: ATORVASTATIN
     Indication: BLOOD CHOLESTEROL
     Dosage: UNK UNK, QD
  8. ESTRACE [Suspect]
     Active Substance: ESTRADIOL
     Indication: URINARY TRACT INFECTION
  9. FUROSEMIDE. [Concomitant]
     Active Substance: FUROSEMIDE
     Indication: JOINT SWELLING
     Dosage: ON MONDAYS, WEDNESDAYS, AND FRIDAYS EACH WEEK
  10. OTHER RESPIRATORY SYSTEM PRODUCTS [Concomitant]
     Active Substance: UNSPECIFIED INGREDIENT
     Indication: ASTHMA
     Dosage: UNK UNK, QD
  11. RESTASIS [Concomitant]
     Active Substance: CYCLOSPORINE
     Indication: GLAUCOMA
     Dosage: UNK UNK, BID
     Route: 047
  12. AZOPT [Concomitant]
     Active Substance: BRINZOLAMIDE
     Indication: GLAUCOMA
     Dosage: 1 GTT, BID
     Route: 047

REACTIONS (2)
  - Breast tenderness [Recovering/Resolving]
  - Product use issue [Unknown]

NARRATIVE: CASE EVENT DATE: 2014
